FAERS Safety Report 21641661 (Version 6)
Quarter: 2023Q2

REPORT INFORMATION
  Report Type: Spontaneous
  Country: JP (occurrence: JP)
  Receive Date: 20221125
  Receipt Date: 20230601
  Transmission Date: 20230721
  Serious: Yes (Hospitalization, Other)
  Sender: FDA-Public Use
  Company Number: JP-MSD-M2022-49328

PATIENT
  Sex: Male

DRUGS (4)
  1. KEYTRUDA [Suspect]
     Active Substance: PEMBROLIZUMAB
     Indication: Oesophageal squamous cell carcinoma
     Dosage: 200 MILLIGRAM, Q3W
     Route: 041
     Dates: start: 202203, end: 2022
  2. KEYTRUDA [Suspect]
     Active Substance: PEMBROLIZUMAB
     Dosage: UNK
     Route: 041
     Dates: start: 2023, end: 2023
  3. FLUOROURACIL [Concomitant]
     Active Substance: FLUOROURACIL
     Indication: Oesophageal squamous cell carcinoma
     Dosage: 800 MILLIGRAM
     Route: 041
     Dates: start: 202203, end: 2022
  4. CISPLATIN [Concomitant]
     Active Substance: CISPLATIN
     Indication: Oesophageal squamous cell carcinoma
     Dosage: 80 MILLIGRAM/SQ. METER, Q3W
     Route: 041
     Dates: start: 202203, end: 2022

REACTIONS (5)
  - Pneumonia aspiration [Recovered/Resolved]
  - Arthralgia [Recovered/Resolved]
  - Immune-mediated dermatitis [Unknown]
  - Arthralgia [Unknown]
  - Myalgia [Unknown]

NARRATIVE: CASE EVENT DATE: 20220101
